FAERS Safety Report 11067549 (Version 1)
Quarter: 2015Q2

REPORT INFORMATION
  Report Type: Spontaneous
  Country: US (occurrence: None)
  Receive Date: 20150424
  Receipt Date: 20150424
  Transmission Date: 20150821
  Serious: Yes (Death, Hospitalization)
  Sender: FDA-Public Use
  Company Number: None

PATIENT
  Age: 13 Year
  Sex: Male
  Weight: 58 kg

DRUGS (5)
  1. DEXAMETHASONE. [Suspect]
     Active Substance: DEXAMETHASONE
     Dates: end: 20150327
  2. ONCASPAR [Suspect]
     Active Substance: PEGASPARGASE
     Dates: end: 20150312
  3. VINCRISTINE SULFATE. [Suspect]
     Active Substance: VINCRISTINE SULFATE
     Dosage: 3 DOSES OF 2 MG
     Route: 042
     Dates: end: 20150323
  4. DOXORUBICIN HYDROCHLORIDE. [Suspect]
     Active Substance: DOXORUBICIN HYDROCHLORIDE
     Dates: end: 20150323
  5. METHOTREXATE [Suspect]
     Active Substance: METHOTREXATE
     Route: 037
     Dates: end: 20150309

REACTIONS (2)
  - Febrile neutropenia [None]
  - Septic shock [None]

NARRATIVE: CASE EVENT DATE: 20150328
